FAERS Safety Report 6897716-4 (Version None)
Quarter: 2010Q3

REPORT INFORMATION
  Report Type: 
  Country: None (occurrence: None)
  Receive Date: 20100802
  Receipt Date: 20070704
  Transmission Date: 20110219
  Serious: No
  Sender: FDA-Public Use
  Company Number: US-PFIZER INC-2007056047

PATIENT
  Sex: Female
  Weight: 63.6 kg

DRUGS (10)
  1. LYRICA [Suspect]
     Indication: HERPES ZOSTER
     Dates: start: 20070501
  2. OMEPRAZOLE [Concomitant]
  3. LISINOPRIL [Concomitant]
  4. COREG [Concomitant]
  5. LEVOTHYROXINE SODIUM [Concomitant]
  6. ZOCOR [Concomitant]
  7. DARIFENACIN [Concomitant]
  8. HYDROCODONE BITARTRATE [Concomitant]
  9. ALPRAZOLAM [Concomitant]
  10. MIRALAX [Concomitant]

REACTIONS (2)
  - BURNING SENSATION [None]
  - PRURITUS [None]
